FAERS Safety Report 7586807-0 (Version None)
Quarter: 2011Q3

REPORT INFORMATION
  Report Type: 
  Country: None (occurrence: None)
  Receive Date: 20110701
  Receipt Date: 20110616
  Transmission Date: 20111222
  Serious: Yes (Other)
  Sender: FDA-Public Use
  Company Number: PHHY2011DE54234

PATIENT
  Age: 74 Year
  Sex: Female

DRUGS (2)
  1. METHOTREXATE [Suspect]
     Indication: PITYRIASIS RUBRA PILARIS
  2. CYCLOSPORINE [Suspect]
     Indication: PITYRIASIS RUBRA PILARIS

REACTIONS (2)
  - DRUG INEFFECTIVE [None]
  - HYPERTENSION [None]
